FAERS Safety Report 7832962-4 (Version None)
Quarter: 2011Q4

REPORT INFORMATION
  Report Type: 
  Country: None (occurrence: None)
  Receive Date: 20111019
  Receipt Date: 20111005
  Transmission Date: 20120403
  Serious: Yes (Other)
  Sender: FDA-Public Use
  Company Number: AUR-APL-2011-05454

PATIENT
  Age: 72 Year
  Sex: Female
  Weight: 81.63 kg

DRUGS (4)
  1. XANAX [Suspect]
     Indication: GENERALISED ANXIETY DISORDER
     Dosage: (0.5 MG,AS REQUIRED),ORAL
     Route: 048
     Dates: start: 20110701
  2. LISINOPRIL [Suspect]
     Indication: HYPERTENSION
     Dosage: (10 MG,1 D),ORAL
     Route: 048
  3. ALPRAZOLAM [Suspect]
     Indication: GENERALISED ANXIETY DISORDER
     Dosage: (0.5 MG,AS REQUIRED),ORAL
     Route: 048
     Dates: start: 20110708, end: 20110701
  4. MANNITOL [Suspect]
     Indication: PRODUCT USED FOR UNKNOWN INDICATION

REACTIONS (8)
  - ABNORMAL DREAMS [None]
  - HEART RATE DECREASED [None]
  - CONFUSIONAL STATE [None]
  - DRUG INTOLERANCE [None]
  - DRUG INTERACTION [None]
  - FATIGUE [None]
  - SOMNOLENCE [None]
  - SLUGGISHNESS [None]
